FAERS Safety Report 20763656 (Version 10)
Quarter: 2022Q4

REPORT INFORMATION
  Report Type: Report from Study
  Country: US (occurrence: US)
  Receive Date: 20220428
  Receipt Date: 20221008
  Transmission Date: 20230112
  Serious: Yes (Other)
  Sender: FDA-Public Use
  Company Number: US-NOVARTISTESTPH-NVSC2022US098433

PATIENT
  Sex: Male

DRUGS (1)
  1. ENTRESTO [Suspect]
     Active Substance: SACUBITRIL\VALSARTAN
     Indication: Product used for unknown indication
     Dosage: UNK
     Route: 048
     Dates: start: 202107

REACTIONS (13)
  - Tumour flare [Unknown]
  - Atrioventricular block [Unknown]
  - Mental disorder [Unknown]
  - Decreased activity [Unknown]
  - Pain [Unknown]
  - Weight increased [Recovering/Resolving]
  - Weight decreased [Unknown]
  - Abdominal discomfort [Unknown]
  - Nerve compression [Unknown]
  - Blood cholesterol increased [Unknown]
  - Stress cardiomyopathy [Unknown]
  - Fatigue [Unknown]
  - Inappropriate schedule of product administration [Unknown]
